FAERS Safety Report 5319730-2 (Version None)
Quarter: 2007Q2

REPORT INFORMATION
  Report Type: 
  Country: None (occurrence: None)
  Receive Date: 20070503
  Receipt Date: 20070420
  Transmission Date: 20071010
  Serious: Yes (Life-Threatening, Hospitalization)
  Sender: FDA-Public Use
  Company Number: FSC-00106_2007

PATIENT
  Age: 72 Year
  Sex: Male

DRUGS (6)
  1. VERAPAMIL [Suspect]
     Indication: CARDIOMYOPATHY
     Dosage: 240 MG QD ORAL
     Route: 048
     Dates: end: 20060827
  2. ENALAPRIL MALEATE [Suspect]
     Indication: HYPERTENSION
     Dosage: 40 MG QD ORAL
     Route: 048
     Dates: end: 20060827
  3. LASIX [Suspect]
     Indication: HYPERTENSION
     Dosage: 40 MG QD ORAL
     Route: 048
     Dates: end: 20060827
  4. SPIRONOLACTONE [Suspect]
     Indication: BLOOD PRESSURE INCREASED
     Dosage: 25  MG QID ORAL
     Route: 048
     Dates: start: 20060704, end: 20060827
  5. ALOPURINOL [Concomitant]
  6. ZARATOR [Concomitant]

REACTIONS (5)
  - ATRIOVENTRICULAR BLOCK COMPLETE [None]
  - DRUG INTERACTION [None]
  - HAEMODIALYSIS [None]
  - HYPERKALAEMIA [None]
  - RENAL FAILURE ACUTE [None]
